FAERS Safety Report 21744242 (Version 1)
Quarter: 2022Q4

REPORT INFORMATION
  Report Type: Spontaneous
  Country: GB (occurrence: GB)
  Receive Date: 20221218
  Receipt Date: 20221218
  Transmission Date: 20230113
  Serious: Yes (Other)
  Sender: FDA-Public Use
  Company Number: GB-MHRA-TPP17843979C8463716YC1669905678377

PATIENT
  Age: 77 Year
  Sex: Female
  Weight: 76 kg

DRUGS (2)
  1. NITROFURANTOIN [Suspect]
     Active Substance: NITROFURANTOIN
     Indication: Product used for unknown indication
     Dosage: 100 MILLIGRAM, TWO TIMES A DAY
     Route: 065
     Dates: start: 20221117
  2. VAGIFEM [Concomitant]
     Active Substance: ESTRADIOL
     Indication: Product used for unknown indication
     Dosage: UNK (APPLY TWICE WEEKLY)
     Route: 065
     Dates: start: 20211127

REACTIONS (2)
  - Vasculitic rash [Recovering/Resolving]
  - Vasculitis [Recovering/Resolving]
